FAERS Safety Report 9840459 (Version 1)
Quarter: 2013Q4

REPORT INFORMATION
  Report Type: Spontaneous
  Country: US (occurrence: None)
  Receive Date: 20131223
  Receipt Date: 20131223
  Transmission Date: 20140711
  Serious: No
  Sender: FDA-Public Use
  Company Number: 220395LEO

PATIENT
  Age: 65 Year
  Sex: Female

DRUGS (2)
  1. PICATO, 0.015%, GEL [Suspect]
     Indication: ACTINIC KERATOSIS
     Route: 048
     Dates: start: 20130130, end: 20130201
  2. DIAZEPAM (DIAZEPAM) [Concomitant]

REACTIONS (2)
  - Application site vesicles [None]
  - Drug administered at inappropriate site [None]
